FAERS Safety Report 8649032 (Version 2)
Quarter: 2012Q4

REPORT INFORMATION
  Report Type: 
  Country: GB (occurrence: GB)
  Receive Date: 20120704
  Receipt Date: 20121008
  Transmission Date: 20130627
  Serious: Yes (Other)
  Sender: FDA-Public Use
  Company Number: PHFR2012GB003770

PATIENT
  Age: 64 Year
  Sex: Female
  Weight: 98 kg

DRUGS (3)
  1. GLIVEC [Suspect]
     Indication: CHRONIC MYELOID LEUKAEMIA
     Dosage: 400 mg, UNK
     Route: 048
     Dates: start: 2001
  2. RAMIPRIL [Concomitant]
     Indication: HYPERTENSION
     Dosage: 2.5 mg, UNK
     Dates: start: 200609
  3. ZYLOME [Concomitant]
     Indication: INSOMNIA
     Dosage: 3.75 mg, UNK
     Dates: start: 2004

REACTIONS (4)
  - Intervertebral disc protrusion [Recovering/Resolving]
  - Back pain [Recovered/Resolved]
  - Nerve compression [Unknown]
  - Sciatica [Unknown]
